FAERS Safety Report 4301981-7 (Version None)
Quarter: 2004Q1

REPORT INFORMATION
  Report Type: 
  Country: None (occurrence: None)
  Receive Date: 20040220
  Receipt Date: 20040210
  Transmission Date: 20041129
  Serious: Yes (Other)
  Sender: FDA-Public Use
  Company Number: ES-JNJFOC-20040103765

PATIENT
  Age: 69 Year
  Sex: Male

DRUGS (9)
  1. REMICADE [Suspect]
     Indication: PSORIATIC ARTHROPATHY
     Dosage: 5 MG/KG, INTRAVENOUS
     Route: 042
     Dates: start: 20021201, end: 20031215
  2. ANGIOTENSIN CONVERTING ENZYME INHIBITOR (RENIN-ANGIOTENSIN SYSTEM, AGE [Concomitant]
  3. NIFEDIPINE [Concomitant]
  4. ALPROSTADIL [Concomitant]
  5. DEFLAZACORT (DEFLAZACORT) [Concomitant]
  6. DICLOFENAC SODIUM [Concomitant]
  7. OMEPRAZOLE [Concomitant]
  8. ENALAPRIL (ENALAPRIL) TABLETS [Concomitant]
  9. TRAMADOL (TRAMADOL HYDROCHLORIDE) [Concomitant]

REACTIONS (2)
  - BLOOD PRESSURE INADEQUATELY CONTROLLED [None]
  - PROSTATE CANCER [None]
